FAERS Safety Report 4667222-6 (Version None)
Quarter: 2005Q2

REPORT INFORMATION
  Report Type: 
  Country: None (occurrence: None)
  Receive Date: 20050520
  Receipt Date: 20041202
  Transmission Date: 20051028
  Serious: No
  Sender: FDA-Public Use
  Company Number: US-BRISTOL-MYERS SQUIBB COMPANY-12782611

PATIENT
  Age: 58 Year
  Sex: Male
  Weight: 111 kg

DRUGS (12)
  1. SINEMET [Suspect]
     Indication: RESTLESS LEGS SYNDROME
     Dosage: 1-3 TABLETS AT BEDTIME
     Route: 048
     Dates: start: 20041101, end: 20041130
  2. ALLEGRA [Concomitant]
  3. ALBUTEROL [Concomitant]
  4. ADVAIR DISKUS 100/50 [Concomitant]
  5. STRATTERA [Concomitant]
  6. NEURONTIN [Concomitant]
  7. LOMOTIL [Concomitant]
  8. PROTONIX [Concomitant]
  9. PAPAVERINE [Concomitant]
  10. PLETAL [Concomitant]
  11. LEXAPRO [Concomitant]
  12. WELLBUTRIN XL [Concomitant]

REACTIONS (2)
  - HOT FLUSH [None]
  - PAIN IN EXTREMITY [None]
